FAERS Safety Report 17873059 (Version 1)
Quarter: 2020Q2

REPORT INFORMATION
  Report Type: Report from Study
  Country: CN (occurrence: CN)
  Receive Date: 20200608
  Receipt Date: 20200608
  Transmission Date: 20200714
  Serious: Yes (Hospitalization, Other)
  Sender: FDA-Public Use
  Company Number: NVSC2020CN130576

PATIENT
  Age: 70 Year
  Sex: Male
  Weight: 50 kg

DRUGS (3)
  1. ENTRESTO [Suspect]
     Active Substance: SACUBITRIL\VALSARTAN
     Indication: CARDIAC FAILURE
     Dosage: 50 MG, BID
     Route: 048
     Dates: start: 20200327, end: 20200509
  2. BARITON [Concomitant]
     Indication: PRODUCT USED FOR UNKNOWN INDICATION
     Dosage: UNK
     Route: 065
     Dates: start: 20200509, end: 20200518
  3. AMIODARONE [Suspect]
     Active Substance: AMIODARONE
     Indication: PRODUCT USED FOR UNKNOWN INDICATION
     Dosage: 0.2 G, QD
     Route: 065
     Dates: start: 201804

REACTIONS (20)
  - Plateletcrit decreased [Recovered/Resolved]
  - Blood cholinesterase decreased [Recovered/Resolved]
  - Extrasystoles [Recovered/Resolved]
  - Syncope [Recovered/Resolved]
  - Blood pressure decreased [Recovered/Resolved]
  - Amaurosis [Recovered/Resolved]
  - Atrial flutter [Recovered/Resolved]
  - Gamma-glutamyltransferase increased [Recovered/Resolved]
  - Lymphadenopathy [Recovered/Resolved]
  - Platelet count decreased [Recovered/Resolved]
  - Ventricular extrasystoles [Recovered/Resolved]
  - Aortic valve calcification [Recovered/Resolved]
  - Left ventricular dysfunction [Recovered/Resolved]
  - Loss of consciousness [Recovered/Resolved]
  - Tricuspid valve incompetence [Not Recovered/Not Resolved]
  - Blood urea increased [Recovered/Resolved]
  - Mitral valve incompetence [Recovered/Resolved]
  - Atrial tachycardia [Recovered/Resolved]
  - Aortic valve incompetence [Recovered/Resolved]
  - N-terminal prohormone brain natriuretic peptide increased [Recovered/Resolved]

NARRATIVE: CASE EVENT DATE: 20200506
